FAERS Safety Report 13276853 (Version 3)
Quarter: 2019Q4

REPORT INFORMATION
  Report Type: Report from Study
  Country: US (occurrence: US)
  Receive Date: 20170228
  Receipt Date: 20191003
  Transmission Date: 20200122
  Serious: No
  Sender: FDA-Public Use
  Company Number: US-009507513-1702USA006112

PATIENT
  Age: 26 Year
  Sex: Female
  Weight: 107 kg

DRUGS (2)
  1. IMPLANON [Suspect]
     Active Substance: ETONOGESTREL
     Dosage: 1 DOSAGE FORM; STRENGTH: 68 MG
     Route: 059
     Dates: start: 20190809, end: 20190809
  2. IMPLANON [Suspect]
     Active Substance: ETONOGESTREL
     Dosage: 1 DOSAGE FORM; STRENGTH: 68 MG
     Route: 059

REACTIONS (6)
  - Complication of device insertion [Unknown]
  - Complication of device insertion [Unknown]
  - Product quality issue [Unknown]
  - Device difficult to use [Unknown]
  - Product quality issue [Unknown]
  - No adverse event [Unknown]

NARRATIVE: CASE EVENT DATE: 201702
